FAERS Safety Report 11510682 (Version 1)
Quarter: 2015Q3

REPORT INFORMATION
  Report Type: Report from Study
  Country: US (occurrence: US)
  Receive Date: 20150915
  Receipt Date: 20150915
  Transmission Date: 20151125
  Serious: Yes (Other)
  Sender: FDA-Public Use
  Company Number: PHEH2015US014353

PATIENT
  Sex: Male

DRUGS (5)
  1. ETODOLAC. [Concomitant]
     Active Substance: ETODOLAC
     Indication: PRODUCT USED FOR UNKNOWN INDICATION
     Route: 065
  2. GILENYA [Suspect]
     Active Substance: FINGOLIMOD HYDROCHLORIDE
     Indication: MULTIPLE SCLEROSIS
     Dosage: 0.5 MG, QD
     Route: 048
     Dates: start: 201403
  3. SILDENAFIL. [Concomitant]
     Active Substance: SILDENAFIL
     Indication: PRODUCT USED FOR UNKNOWN INDICATION
     Dosage: UNK
     Route: 065
  4. TRAZODONE [Concomitant]
     Active Substance: TRAZODONE HYDROCHLORIDE
     Indication: PRODUCT USED FOR UNKNOWN INDICATION
     Route: 065
  5. VITAMIN D [Concomitant]
     Active Substance: CHOLECALCIFEROL
     Indication: PRODUCT USED FOR UNKNOWN INDICATION
     Route: 065

REACTIONS (39)
  - Ataxia [Unknown]
  - Bladder dysfunction [Unknown]
  - Muscle spasms [Unknown]
  - Central nervous system lesion [Unknown]
  - Joint swelling [Unknown]
  - Balance disorder [Not Recovered/Not Resolved]
  - Defaecation urgency [Unknown]
  - Gait disturbance [Unknown]
  - Mood altered [Unknown]
  - Coordination abnormal [Unknown]
  - Vitamin D deficiency [Unknown]
  - Arthralgia [Unknown]
  - Fall [Unknown]
  - Cognitive disorder [Unknown]
  - Clumsiness [Unknown]
  - Limb discomfort [Unknown]
  - Asthenia [Unknown]
  - Hypoaesthesia [Unknown]
  - Loss of proprioception [Unknown]
  - Weight abnormal [Unknown]
  - Functional gastrointestinal disorder [Unknown]
  - Memory impairment [Unknown]
  - Paraesthesia [Unknown]
  - Mental impairment [Unknown]
  - Sensory disturbance [Unknown]
  - Multiple sclerosis relapse [Unknown]
  - Erectile dysfunction [Unknown]
  - Anhedonia [Unknown]
  - Aggression [Unknown]
  - Urinary incontinence [Unknown]
  - Muscular weakness [Unknown]
  - Micturition urgency [Unknown]
  - Arthritis [Unknown]
  - Faecal incontinence [Unknown]
  - Poor quality sleep [Unknown]
  - Nervous system disorder [Unknown]
  - Disturbance in attention [Unknown]
  - Fatigue [Unknown]
  - Myalgia [Unknown]
